FAERS Safety Report 6536964-X (Version None)
Quarter: 2010Q1

REPORT INFORMATION
  Report Type: 
  Country: None (occurrence: None)
  Receive Date: 20100107
  Receipt Date: 20091223
  Transmission Date: 20100710
  Serious: Yes (Hospitalization)
  Sender: FDA-Public Use
  Company Number: 2009AP005146

PATIENT
  Age: 71 Year
  Sex: Male

DRUGS (7)
  1. GABAPENTIN [Suspect]
     Indication: DIABETIC NEPHROPATHY
     Dosage: 300 MG;QID
  2. ACETYLSALICYLIC ACID [Concomitant]
  3. ATENOLOL [Concomitant]
  4. ATORVASTATIN CALCIUM [Concomitant]
  5. CALCIUM ACETATE [Concomitant]
  6. INSULIN [Concomitant]
  7. VANCOMYCIN [Concomitant]

REACTIONS (17)
  - AMNESIA [None]
  - ANURIA [None]
  - BLOOD BICARBONATE DECREASED [None]
  - BLOOD GLUCOSE INCREASED [None]
  - BLOOD SODIUM DECREASED [None]
  - CEREBRAL ATROPHY [None]
  - CONFUSIONAL STATE [None]
  - DEMENTIA [None]
  - DRUG TOXICITY [None]
  - ELECTROENCEPHALOGRAM ABNORMAL [None]
  - HAEMOGLOBIN DECREASED [None]
  - HALLUCINATION, VISUAL [None]
  - ISCHAEMIA [None]
  - MENTAL STATUS CHANGES [None]
  - POSTOPERATIVE WOUND INFECTION [None]
  - SKIN ULCER [None]
  - SOMNOLENCE [None]
